FAERS Safety Report 14570178 (Version 1)
Quarter: 2018Q1

REPORT INFORMATION
  Report Type: Spontaneous
  Country: US (occurrence: US)
  Receive Date: 20180225
  Receipt Date: 20180225
  Transmission Date: 20180509
  Serious: No
  Sender: FDA-Public Use
  Company Number: US-009507513-1802USA009847

PATIENT
  Age: 38 Year
  Sex: Female
  Weight: 83.9 kg

DRUGS (1)
  1. NEXPLANON [Suspect]
     Active Substance: ETONOGESTREL
     Indication: CONTRACEPTION
     Dosage: 1 DF, 3 YEAR IMPLANT INSIDE THE LEFT ARM
     Route: 059
     Dates: start: 20161114

REACTIONS (2)
  - Polymenorrhoea [Unknown]
  - Amenorrhoea [Unknown]
